FAERS Safety Report 17722707 (Version 1)
Quarter: 2020Q2

REPORT INFORMATION
  Report Type: Spontaneous
  Country: AT (occurrence: AT)
  Receive Date: 20200429
  Receipt Date: 20200429
  Transmission Date: 20200714
  Serious: Yes (Death, Other)
  Sender: FDA-Public Use
  Company Number: AT-SA-2020SA108936

PATIENT
  Age: 80 Year
  Sex: Female

DRUGS (14)
  1. FASTURTEC [Concomitant]
     Active Substance: RASBURICASE
     Route: 065
  2. PARACETAMOL [Concomitant]
     Active Substance: ACETAMINOPHEN
     Route: 065
  3. LASIX [Concomitant]
     Active Substance: FUROSEMIDE
     Route: 065
  4. DEXAMETHASONE. [Concomitant]
     Active Substance: DEXAMETHASONE
     Route: 065
  5. FAMVIR [Concomitant]
     Active Substance: FAMCICLOVIR
     Route: 065
  6. LIDAPRIM [SULFAMETROLE;TRIMETHOPRIM] [Concomitant]
     Active Substance: SULFAMETROLE\TRIMETHOPRIM
     Route: 065
  7. HISTAKUT [Concomitant]
     Route: 065
  8. FAMVIR [Concomitant]
     Active Substance: FAMCICLOVIR
     Route: 065
  9. PANTIP [Concomitant]
     Active Substance: PANTOPRAZOLE SODIUM
     Route: 065
  10. BISOPROLOL [Concomitant]
     Active Substance: BISOPROLOL
     Route: 065
  11. THROMBO ASS [Concomitant]
     Active Substance: ASPIRIN
     Route: 065
  12. RISPERIDON [Concomitant]
     Active Substance: RISPERIDONE
     Route: 065
  13. TAVANIC [Concomitant]
     Active Substance: LEVOFLOXACIN
     Route: 065
  14. LEMTRADA [Suspect]
     Active Substance: ALEMTUZUMAB
     Indication: LYMPHOCYTIC LEUKAEMIA
     Dosage: 3 MG (2 HR IV), QD
     Route: 042
     Dates: start: 20200421

REACTIONS (4)
  - Intestinal haemorrhage [Fatal]
  - Shock haemorrhagic [Fatal]
  - General physical health deterioration [Unknown]
  - Off label use [Unknown]

NARRATIVE: CASE EVENT DATE: 20200421
